FAERS Safety Report 13915259 (Version 3)
Quarter: 2017Q3

REPORT INFORMATION
  Report Type: Spontaneous
  Country: JP (occurrence: JP)
  Receive Date: 20170829
  Receipt Date: 20170918
  Transmission Date: 20171127
  Serious: Yes (Hospitalization)
  Sender: FDA-Public Use
  Company Number: JP-ROCHE-1983109

PATIENT
  Age: 57 Year
  Sex: Male
  Weight: 51 kg

DRUGS (5)
  1. OXALIPLATIN. [Concomitant]
     Active Substance: OXALIPLATIN
     Indication: COLON CANCER
     Dosage: DOSAGE IS UNCERTAIN.
     Route: 041
  2. XELODA [Suspect]
     Active Substance: CAPECITABINE
     Indication: COLON CANCER
     Route: 048
     Dates: start: 20151124, end: 20160223
  3. ELPLAT [Concomitant]
     Active Substance: OXALIPLATIN
     Indication: COLON CANCER
     Dosage: DOSAGE IS UNCERTAIN.
     Route: 041
     Dates: start: 20151201, end: 20160216
  4. ERBITUX [Suspect]
     Active Substance: CETUXIMAB
     Indication: COLON CANCER
     Dosage: MOST RECENT DOSE PRIOR TO EVENT 16/FEB/2016
     Route: 041
     Dates: start: 20151201
  5. CETUXIMAB. [Concomitant]
     Active Substance: CETUXIMAB
     Route: 065

REACTIONS (1)
  - Interstitial lung disease [Recovering/Resolving]

NARRATIVE: CASE EVENT DATE: 20160223
